FAERS Safety Report 17514270 (Version 3)
Quarter: 2020Q2

REPORT INFORMATION
  Report Type: Report from Study
  Country: None (occurrence: CO)
  Receive Date: 20200306
  Receipt Date: 20200622
  Transmission Date: 20200713
  Serious: Yes (Other)
  Sender: FDA-Public Use
  Company Number: CO-ABBVIE-20K-036-3265541-00

PATIENT
  Age: 68 Year
  Sex: Male
  Weight: 88 kg

DRUGS (3)
  1. HUMIRA [Suspect]
     Active Substance: ADALIMUMAB
     Indication: PRODUCT USED FOR UNKNOWN INDICATION
     Route: 058
     Dates: start: 20150727
  2. HUMIRA [Suspect]
     Active Substance: ADALIMUMAB
     Indication: ANKYLOSING SPONDYLITIS
     Route: 058
     Dates: end: 20200104
  3. LOSARTAN. [Concomitant]
     Active Substance: LOSARTAN
     Indication: HYPERTENSION
     Route: 048

REACTIONS (16)
  - Multiple sclerosis [Unknown]
  - Asphyxia [Recovering/Resolving]
  - Arthralgia [Not Recovered/Not Resolved]
  - Mental disorder [Unknown]
  - Arthralgia [Recovering/Resolving]
  - Salivary hypersecretion [Recovering/Resolving]
  - Sleep disorder [Unknown]
  - Back pain [Not Recovered/Not Resolved]
  - Pain in extremity [Recovering/Resolving]
  - Saliva altered [Recovered/Resolved]
  - Blood triglycerides increased [Not Recovered/Not Resolved]
  - Pain [Recovering/Resolving]
  - Chest pain [Unknown]
  - Drowning [Not Recovered/Not Resolved]
  - Vomiting [Recovering/Resolving]
  - Pulmonary pain [Not Recovered/Not Resolved]

NARRATIVE: CASE EVENT DATE: 201911
